FAERS Safety Report 9376914 (Version 2)
Quarter: 2013Q3

REPORT INFORMATION
  Report Type: Spontaneous
  Country: FR (occurrence: FR)
  Receive Date: 20130701
  Receipt Date: 20130710
  Transmission Date: 20140515
  Serious: Yes (Hospitalization)
  Sender: FDA-Public Use
  Company Number: PHHY2013FR066823

PATIENT
  Age: 50 Year
  Sex: Female

DRUGS (4)
  1. EXFORGE [Suspect]
     Indication: HYPERTENSION
     Dosage: UNK UKN, UNK
     Dates: start: 201011, end: 20110130
  2. GLUCOPHAGE [Concomitant]
     Dosage: 1000 MG, BID DAILY
     Route: 048
  3. LEVOTHYROX [Concomitant]
     Dosage: 100 UG, QD DAILY
     Route: 048
  4. INEXIUM//ESOMEPRAZOLE SODIUM [Concomitant]
     Dosage: 20 MG, QD
     Route: 048

REACTIONS (4)
  - Photophobia [Recovered/Resolved]
  - Vomiting [Recovered/Resolved]
  - Headache [Recovered/Resolved]
  - Nausea [Recovered/Resolved]
